FAERS Safety Report 10413168 (Version 1)
Quarter: 2014Q3

REPORT INFORMATION
  Report Type: Spontaneous
  Country: PL (occurrence: PL)
  Receive Date: 20140827
  Receipt Date: 20140827
  Transmission Date: 20150326
  Serious: Yes (Other)
  Sender: FDA-Public Use
  Company Number: PHHY2014PL104064

PATIENT
  Age: 27 Year
  Sex: Male

DRUGS (3)
  1. RISPERIDONE. [Suspect]
     Active Substance: RISPERIDONE
     Dosage: 5 MG, UNK
  2. OLANZAPINE. [Suspect]
     Active Substance: OLANZAPINE
     Dosage: 15 MG, UNK
  3. RISPERIDONE. [Suspect]
     Active Substance: RISPERIDONE
     Dosage: 3 MG, UNK

REACTIONS (13)
  - Liver injury [Recovered/Resolved]
  - Disturbance in attention [Recovered/Resolved]
  - Sedation [Recovered/Resolved]
  - Apathy [Recovered/Resolved]
  - Blunted affect [Recovered/Resolved]
  - Dyslipidaemia [Recovered/Resolved]
  - Nausea [Recovered/Resolved]
  - Abdominal pain [Recovered/Resolved]
  - Hypertriglyceridaemia [Recovered/Resolved]
  - Akathisia [Recovered/Resolved]
  - Drug ineffective [Recovered/Resolved]
  - Anhedonia [Recovered/Resolved]
  - Asthenia [Recovered/Resolved]
